FAERS Safety Report 4868405-2 (Version None)
Quarter: 2005Q4

REPORT INFORMATION
  Report Type: 
  Country: None (occurrence: None)
  Receive Date: 20051229
  Receipt Date: 20051222
  Transmission Date: 20060501
  Serious: Yes (Hospitalization)
  Sender: FDA-Public Use
  Company Number: CH-GLAXOSMITHKLINE-B0404775A

PATIENT
  Age: 65 Year
  Sex: Male
  Weight: 76 kg

DRUGS (9)
  1. AUGMENTIN '125' [Suspect]
     Route: 048
     Dates: start: 20051020, end: 20051024
  2. CLAMOXYL [Suspect]
     Indication: MENINGITIS
     Dosage: 2G SIX TIMES PER DAY
     Route: 042
     Dates: start: 20051027, end: 20051029
  3. PNEUMOCOCCAL VACCINE [Suspect]
     Indication: PROPHYLAXIS
     Route: 030
     Dates: start: 20051020, end: 20051020
  4. MUTAGRIP [Suspect]
     Indication: PROPHYLAXIS
     Route: 030
     Dates: start: 20051020, end: 20051020
  5. CANDESARTAN [Concomitant]
     Dosage: 16MG PER DAY
     Route: 048
  6. PHYSIOTENS [Concomitant]
     Indication: HYPERTENSION
     Dosage: .3MG PER DAY
     Route: 048
  7. ZURCAL [Concomitant]
     Dosage: 40MG PER DAY
     Route: 048
  8. DITROPAN [Concomitant]
     Indication: URINARY INCONTINENCE
     Dosage: 5MG FOUR TIMES PER DAY
  9. ACIMETHIN [Concomitant]
     Indication: PROPHYLAXIS
     Dosage: 500MG SIX TIMES PER DAY

REACTIONS (11)
  - APHASIA [None]
  - CONFUSIONAL STATE [None]
  - FEELING HOT [None]
  - HEADACHE [None]
  - INJECTION SITE INFLAMMATION [None]
  - MENINGITIS ASEPTIC [None]
  - MUSCULOSKELETAL STIFFNESS [None]
  - PAIN [None]
  - PLEOCYTOSIS [None]
  - PYREXIA [None]
  - RASH [None]
